FAERS Safety Report 21571523 (Version 1)
Quarter: 2022Q4

REPORT INFORMATION
  Report Type: Spontaneous
  Country: US (occurrence: None)
  Receive Date: 20221107
  Receipt Date: 20221107
  Transmission Date: 20230113
  Serious: Yes (Death)
  Sender: FDA-Public Use
  Company Number: None

PATIENT
  Sex: Female

DRUGS (4)
  1. SILDENAFIL [Suspect]
     Active Substance: SILDENAFIL
     Indication: Premature baby
     Dosage: FREQUENCY : 3 TIMES A DAY;?
     Route: 048
     Dates: start: 202205
  2. SILDENAFIL [Suspect]
     Active Substance: SILDENAFIL
     Indication: Fallot^s tetralogy
  3. SILDENAFIL [Suspect]
     Active Substance: SILDENAFIL
     Indication: Pulmonary arterial hypertension
  4. SILDENAFIL [Suspect]
     Active Substance: SILDENAFIL
     Indication: Congenital pulmonary artery anomaly

REACTIONS (1)
  - Cardiac arrest [None]
